FAERS Safety Report 20730346 (Version 1)
Quarter: 2022Q2

REPORT INFORMATION
  Report Type: Spontaneous
  Country: BR (occurrence: BR)
  Receive Date: 20220420
  Receipt Date: 20220420
  Transmission Date: 20220721
  Serious: Yes (Other)
  Sender: FDA-Public Use
  Company Number: BR-PFIZER INC-202200590012

PATIENT
  Sex: Female

DRUGS (3)
  1. CELECOXIB [Suspect]
     Active Substance: CELECOXIB
     Indication: Arthritis
     Dosage: 200 MG, 1X/DAY
  2. CELECOXIB [Suspect]
     Active Substance: CELECOXIB
     Indication: Pain
  3. ATORVASTATIN [Concomitant]
     Active Substance: ATORVASTATIN
     Indication: Blood cholesterol

REACTIONS (9)
  - Renal impairment [Unknown]
  - Chest pain [Unknown]
  - Neck pain [Unknown]
  - Blood pressure increased [Unknown]
  - Urinary tract infection [Recovering/Resolving]
  - Ocular discomfort [Recovering/Resolving]
  - Gingival swelling [Recovering/Resolving]
  - Confusional state [Unknown]
  - Circumstance or information capable of leading to medication error [Unknown]
